FAERS Safety Report 8764683 (Version 1)
Quarter: 2012Q4

REPORT INFORMATION
  Report Type: 
  Country: GB (occurrence: GB)
  Receive Date: 20120831
  Receipt Date: 20120831
  Transmission Date: 20130627
  Serious: Yes (Hospitalization)
  Sender: FDA-Public Use
  Company Number: GB-TEVA-355359ISR

PATIENT
  Age: 58 Year
  Sex: Female
  Weight: 76.2 kg

DRUGS (2)
  1. AZILECT [Suspect]
     Route: 048
     Dates: start: 20120207, end: 20120310
  2. HORMONE CONSTITUENTS [Concomitant]

REACTIONS (8)
  - Nausea [Recovering/Resolving]
  - Fatigue [Recovered/Resolved]
  - Amnesia [Recovered/Resolved with Sequelae]
  - Coordination abnormal [Recovered/Resolved]
  - Hot flush [Unknown]
  - Speech disorder [Unknown]
  - Hormone level abnormal [Recovered/Resolved]
  - Fall [Recovered/Resolved]
